FAERS Safety Report 14247635 (Version 1)
Quarter: 2017Q4

REPORT INFORMATION
  Report Type: Spontaneous
  Country: FR (occurrence: FR)
  Receive Date: 20171204
  Receipt Date: 20171204
  Transmission Date: 20180321
  Serious: Yes (Disabling, Other)
  Sender: FDA-Public Use
  Company Number: FR-JNJFOC-20171200483

PATIENT
  Age: 79 Year
  Sex: Male

DRUGS (5)
  1. LEVOTHYROX [Concomitant]
     Active Substance: LEVOTHYROXINE
     Route: 065
  2. IMBRUVICA [Suspect]
     Active Substance: IBRUTINIB
     Indication: CHRONIC LYMPHOCYTIC LEUKAEMIA
     Route: 048
  3. IMBRUVICA [Suspect]
     Active Substance: IBRUTINIB
     Indication: CHRONIC LYMPHOCYTIC LEUKAEMIA
     Route: 048
  4. IMBRUVICA [Suspect]
     Active Substance: IBRUTINIB
     Indication: CHRONIC LYMPHOCYTIC LEUKAEMIA
     Route: 048
     Dates: start: 201709
  5. PREDNISOLONE. [Concomitant]
     Active Substance: PREDNISOLONE
     Indication: GOUT
     Route: 065

REACTIONS (5)
  - Cerebral disorder [Recovered/Resolved]
  - Incorrect dose administered [Unknown]
  - Off label use [Unknown]
  - Paralysis [Recovered/Resolved]
  - Toxoplasmosis [Recovered/Resolved]

NARRATIVE: CASE EVENT DATE: 201709
